FAERS Safety Report 8769265 (Version 3)
Quarter: 2012Q4

REPORT INFORMATION
  Report Type: 
  Country: LU (occurrence: LU)
  Receive Date: 20120905
  Receipt Date: 20121023
  Transmission Date: 20130627
  Serious: Yes (Other)
  Sender: FDA-Public Use
  Company Number: LU-AMGEN-LUXSP2012054853

PATIENT
  Age: 28 Year
  Sex: Female
  Weight: 54 kg

DRUGS (2)
  1. NPLATE [Suspect]
     Indication: IDIOPATHIC THROMBOCYTOPENIC PURPURA
     Dosage: 200 UNK, qwk
     Route: 058
     Dates: start: 20120715
  2. RITUXIMAB [Concomitant]
     Indication: IDIOPATHIC THROMBOCYTOPENIC PURPURA
     Dosage: 375 mg/m2, q2mo
     Dates: start: 20120618

REACTIONS (2)
  - Platelet count decreased [Recovered/Resolved]
  - Abortion spontaneous [Unknown]
